FAERS Safety Report 6768773-0 (Version None)
Quarter: 2010Q2

REPORT INFORMATION
  Report Type: 
  Country: None (occurrence: None)
  Receive Date: 20100611
  Receipt Date: 20100601
  Transmission Date: 20101027
  Serious: Yes (Hospitalization)
  Sender: FDA-Public Use
  Company Number: 1000014203

PATIENT
  Age: 48 Year
  Sex: Male

DRUGS (3)
  1. NEBIVOLOL HCL [Suspect]
  2. BACLOFEN [Suspect]
  3. DIAZEPAM [Suspect]

REACTIONS (12)
  - BLOOD ETHANOL INCREASED [None]
  - CARDIAC ARREST [None]
  - COMA SCALE ABNORMAL [None]
  - DRUG SCREEN POSITIVE [None]
  - ELECTROCARDIOGRAM QT PROLONGED [None]
  - HYPOKALAEMIA [None]
  - HYPOVENTILATION [None]
  - MULTIPLE DRUG OVERDOSE INTENTIONAL [None]
  - OVERDOSE [None]
  - PUPILLARY REFLEX IMPAIRED [None]
  - SUICIDE ATTEMPT [None]
  - UNRESPONSIVE TO STIMULI [None]
